FAERS Safety Report 5779807-4 (Version None)
Quarter: 2008Q2

REPORT INFORMATION
  Report Type: 
  Country: None (occurrence: None)
  Receive Date: 20080618
  Receipt Date: 20080602
  Transmission Date: 20081010
  Serious: Yes (Hospitalization)
  Sender: FDA-Public Use
  Company Number: 2008S1006270

PATIENT
  Age: 45 Year
  Sex: Male

DRUGS (8)
  1. AZATHIOPRINE [Suspect]
     Indication: VASCULITIS
     Dosage: 150 MG; DAILY
  2. AZATHIOPRINE [Suspect]
     Indication: WEGENER'S GRANULOMATOSIS
     Dosage: 150 MG; DAILY
  3. PREDNISOLONE (PREDNISOLONE) (CON.) [Concomitant]
  4. ATORVASTATIN (ATORVASTATIN) (CON.) [Concomitant]
  5. CALCICHEW /00108001/ (CALCIUM CARBONATE) (CON.) [Concomitant]
  6. CO-TRIMOXAZOLE (CO-TRIMOXAZOLE) (CON.) [Concomitant]
  7. IRBESARTAN (IRBESAARTAN) (CON.) [Concomitant]
  8. OMEPRAZOLE (OMEPRAZOLE) (CON.) [Concomitant]

REACTIONS (6)
  - ANAEMIA [None]
  - CHILLS [None]
  - HYPOTENSION [None]
  - PERIPHERAL COLDNESS [None]
  - RENAL IMPAIRMENT [None]
  - TUBULOINTERSTITIAL NEPHRITIS [None]
